FAERS Safety Report 18927332 (Version 1)
Quarter: 2021Q1

REPORT INFORMATION
  Report Type: Spontaneous
  Country: US (occurrence: US)
  Receive Date: 20210222
  Receipt Date: 20210222
  Transmission Date: 20210420
  Serious: Yes (Other)
  Sender: FDA-Public Use
  Company Number: None

PATIENT
  Age: 51 Year
  Sex: Female

DRUGS (5)
  1. OMEPRAZOLE. [Concomitant]
     Active Substance: OMEPRAZOLE
     Dates: start: 20201024
  2. METHOCARBAM [Concomitant]
     Active Substance: METHOCARBAMOL
     Dates: start: 20200925
  3. NORETHINDRON [Concomitant]
     Dates: start: 20210102
  4. CYANOCBALAMIN [Concomitant]
     Dates: start: 20210125
  5. STELARA [Suspect]
     Active Substance: USTEKINUMAB
     Indication: PRODUCT USED FOR UNKNOWN INDICATION
     Dosage: ?          OTHER FREQUENCY:EVERY 4 WEEKS;?
     Route: 058
     Dates: start: 20200222, end: 20201215

REACTIONS (1)
  - Upper respiratory tract infection [None]

NARRATIVE: CASE EVENT DATE: 20210201
